FAERS Safety Report 7418499-5 (Version None)
Quarter: 2011Q2

REPORT INFORMATION
  Report Type: 
  Country: None (occurrence: None)
  Receive Date: 20110415
  Receipt Date: 20110413
  Transmission Date: 20111010
  Serious: Yes (Hospitalization, Other)
  Sender: FDA-Public Use
  Company Number: AU-PFIZER INC-2011053673

PATIENT
  Age: 69 Year
  Sex: Male
  Weight: 85 kg

DRUGS (3)
  1. LIPITOR [Suspect]
     Indication: BLOOD CHOLESTEROL
     Dosage: 80 MG, 1X/DAY
     Route: 048
  2. FUSIDIC ACID [Suspect]
     Indication: PRODUCT CONTAMINATION MICROBIAL
     Dosage: 250 MG, 3X/DAY
     Route: 048
  3. PENICILLIN NOS [Suspect]
     Indication: DEVICE RELATED INFECTION

REACTIONS (2)
  - RHABDOMYOLYSIS [None]
  - MYOGLOBIN BLOOD INCREASED [None]
